FAERS Safety Report 19986472 (Version 1)
Quarter: 2021Q4

REPORT INFORMATION
  Report Type: Report from Study
  Country: US (occurrence: US)
  Receive Date: 20211022
  Receipt Date: 20211022
  Transmission Date: 20220303
  Serious: Yes (Hospitalization)
  Sender: FDA-Public Use
  Company Number: US-BAYER-2021A235246

PATIENT
  Age: 40 Year
  Sex: Male
  Weight: 63.49 kg

DRUGS (3)
  1. ADEMPAS [Suspect]
     Active Substance: RIOCIGUAT
     Indication: Pulmonary arterial hypertension
     Dosage: UNK
     Dates: start: 20190617
  2. ADEMPAS [Suspect]
     Active Substance: RIOCIGUAT
     Indication: Pulmonary arterial hypertension
     Dosage: 2 MG, TID
     Route: 048
  3. LETAIRIS [Concomitant]
     Active Substance: AMBRISENTAN
     Dosage: UNK

REACTIONS (1)
  - Sigmoidoscopy [None]

NARRATIVE: CASE EVENT DATE: 20211001
